FAERS Safety Report 6903096-8 (Version None)
Quarter: 2010Q3

REPORT INFORMATION
  Report Type: 
  Country: None (occurrence: None)
  Receive Date: 20100803
  Receipt Date: 20080805
  Transmission Date: 20110219
  Serious: No
  Sender: FDA-Public Use
  Company Number: US-PFIZER INC-2008066316

PATIENT
  Sex: Male
  Weight: 113 kg

DRUGS (11)
  1. LYRICA [Suspect]
     Indication: DIABETIC NEUROPATHY
     Dates: start: 20060401
  2. GENGRAF [Concomitant]
  3. CELLCEPT [Concomitant]
  4. PREDNISONE [Concomitant]
  5. FLUCONAZOLE [Concomitant]
  6. ENALAPRIL [Concomitant]
  7. PRAVACHOL [Concomitant]
  8. PENTOXIFYLLINE [Concomitant]
  9. ACETYLSALICYLIC ACID SRT [Concomitant]
  10. LEVOTHYROXINE SODIUM [Concomitant]
  11. INSULIN [Concomitant]

REACTIONS (2)
  - JOINT SWELLING [None]
  - TENDON INJURY [None]
